FAERS Safety Report 8697379 (Version 2)
Quarter: 2012Q4

REPORT INFORMATION
  Report Type: 
  Country: US (occurrence: US)
  Receive Date: 20120801
  Receipt Date: 20121019
  Transmission Date: 20130627
  Serious: No
  Sender: FDA-Public Use
  Company Number: US-ASTRAZENECA-2012SE50538

PATIENT
  Age: 58 Year
  Sex: Male

DRUGS (10)
  1. NEXIUM [Suspect]
     Indication: GASTROOESOPHAGEAL REFLUX DISEASE
     Route: 048
  2. NEXIUM [Suspect]
     Indication: OESOPHAGEAL ULCER
     Route: 048
  3. NEXIUM [Suspect]
     Indication: BARRETT^S OESOPHAGUS
     Route: 048
  4. NEXIUM [Suspect]
     Indication: GASTROOESOPHAGEAL REFLUX DISEASE
     Route: 048
  5. NEXIUM [Suspect]
     Indication: OESOPHAGEAL ULCER
     Route: 048
  6. NEXIUM [Suspect]
     Indication: BARRETT^S OESOPHAGUS
     Route: 048
  7. NEXIUM [Suspect]
     Indication: GASTROOESOPHAGEAL REFLUX DISEASE
     Dosage: TAKE AN EXTRA DOSE SOMETIMES
     Route: 048
  8. NEXIUM [Suspect]
     Indication: OESOPHAGEAL ULCER
     Dosage: TAKE AN EXTRA DOSE SOMETIMES
     Route: 048
  9. NEXIUM [Suspect]
     Indication: BARRETT^S OESOPHAGUS
     Dosage: TAKE AN EXTRA DOSE SOMETIMES
     Route: 048
  10. GEODON [Concomitant]
     Indication: PSYCHOTIC DISORDER

REACTIONS (6)
  - Oesophageal pain [Unknown]
  - Peptic ulcer [Unknown]
  - Off label use [Unknown]
  - Drug dose omission [Unknown]
  - Intentional drug misuse [Unknown]
  - Drug effect decreased [Unknown]
